FAERS Safety Report 21727341 (Version 1)
Quarter: 2022Q4

REPORT INFORMATION
  Report Type: Spontaneous
  Country: US (occurrence: None)
  Receive Date: 20221213
  Receipt Date: 20221213
  Transmission Date: 20230113
  Serious: No
  Sender: FDA-Public Use
  Company Number: None

PATIENT
  Age: 52 Year
  Sex: Male
  Weight: 92.25 kg

DRUGS (3)
  1. NASAL DECONGESTANT PE [Suspect]
     Active Substance: PHENYLEPHRINE HYDROCHLORIDE
     Indication: Sinus disorder
     Dosage: OTHER QUANTITY : 1 TABLET(S);?
     Route: 048
     Dates: start: 20221213, end: 20221213
  2. TYLENOL [Concomitant]
  3. PSEUDOEPHEDRINE HYDROCHLORIDE [Concomitant]
     Active Substance: PSEUDOEPHEDRINE HYDROCHLORIDE

REACTIONS (7)
  - Dizziness [None]
  - Disorientation [None]
  - Dysstasia [None]
  - Gait disturbance [None]
  - Vomiting [None]
  - Impaired work ability [None]
  - Product complaint [None]

NARRATIVE: CASE EVENT DATE: 20221213
